FAERS Safety Report 25545521 (Version 1)
Quarter: 2025Q3

REPORT INFORMATION
  Report Type: Spontaneous
  Country: DZ (occurrence: DZ)
  Receive Date: 20250711
  Receipt Date: 20250711
  Transmission Date: 20251021
  Serious: Yes (Death)
  Sender: PFIZER
  Company Number: DZ-PFIZER INC-202500140889

PATIENT
  Sex: Male

DRUGS (1)
  1. XALKORI [Suspect]
     Active Substance: CRIZOTINIB

REACTIONS (1)
  - Death [Fatal]
